FAERS Safety Report 6658059-7 (Version None)
Quarter: 2010Q1

REPORT INFORMATION
  Report Type: 
  Country: None (occurrence: None)
  Receive Date: 20100330
  Receipt Date: 20100312
  Transmission Date: 20100710
  Serious: Yes (Disabling)
  Sender: FDA-Public Use
  Company Number: CA-MERCK-1003USA01888

PATIENT
  Age: 51 Year
  Sex: Male
  Weight: 91 kg

DRUGS (2)
  1. PROPECIA [Suspect]
     Route: 048
  2. ACCUPRIL [Concomitant]
     Route: 065

REACTIONS (1)
  - RENAL PAIN [None]
